FAERS Safety Report 24463555 (Version 1)
Quarter: 2024Q4

REPORT INFORMATION
  Report Type: Spontaneous
  Country: CH (occurrence: CH)
  Receive Date: 20241018
  Receipt Date: 20241018
  Transmission Date: 20250115
  Serious: Yes (Life-Threatening, Hospitalization, Other)
  Sender: NORDIC PHARMA
  Company Number: CH-NORDICGR-057663

PATIENT
  Age: 66 Year
  Sex: Female
  Weight: 94.6 kg

DRUGS (3)
  1. METHOTREXATE [Suspect]
     Active Substance: METHOTREXATE
     Indication: Rheumatoid arthritis
     Route: 058
     Dates: end: 20240824
  2. ORENCIA [Concomitant]
     Active Substance: ABATACEPT
     Indication: Rheumatoid arthritis
     Route: 042
  3. Novalgin [Concomitant]
     Indication: Product used for unknown indication
     Route: 065

REACTIONS (4)
  - Pancytopenia [Recovering/Resolving]
  - Sepsis [Unknown]
  - Cholecystitis [Unknown]
  - Pneumonia [Unknown]

NARRATIVE: CASE EVENT DATE: 20240101
